FAERS Safety Report 9284814 (Version 1)
Quarter: 2013Q2

REPORT INFORMATION
  Report Type: Spontaneous
  Country: US (occurrence: US)
  Receive Date: 20130513
  Receipt Date: 20130513
  Transmission Date: 20140414
  Serious: Yes (Hospitalization, Other)
  Sender: FDA-Public Use
  Company Number: US-ROCHE-1221717

PATIENT
  Sex: Male

DRUGS (3)
  1. KLONOPIN [Suspect]
     Indication: PRODUCT USED FOR UNKNOWN INDICATION
     Route: 065
  2. ATIVAN [Suspect]
     Indication: CONVULSION
     Route: 048
  3. ATIVAN [Suspect]
     Route: 048

REACTIONS (14)
  - Convulsion [Unknown]
  - Cerebrovascular accident [Unknown]
  - Cerebral haemorrhage [Unknown]
  - Anxiety [Unknown]
  - Agitation [Unknown]
  - Restlessness [Unknown]
  - Panic attack [Unknown]
  - Insomnia [Unknown]
  - Irritability [Unknown]
  - Aggression [Unknown]
  - Logorrhoea [Unknown]
  - Aphagia [Unknown]
  - Abdominal pain upper [Unknown]
  - Tremor [Unknown]
